FAERS Safety Report 6111546-2 (Version None)
Quarter: 2009Q1

REPORT INFORMATION
  Report Type: 
  Country: None (occurrence: None)
  Receive Date: 20090310
  Receipt Date: 20090310
  Transmission Date: 20090719
  Serious: Yes (Hospitalization)
  Sender: FDA-Public Use
  Company Number: None

PATIENT
  Age: 63 Year
  Sex: Female
  Weight: 57.4 kg

DRUGS (12)
  1. ABATACEPT 750 MG BRISTOL-MYERS SQUIBB [Suspect]
     Indication: RHEUMATOID ARTHRITIS
     Dosage: 750 MG MONTHLY IV
     Route: 042
     Dates: start: 20071208, end: 20090108
  2. CALCIUM [Concomitant]
  3. FOSAMAX [Concomitant]
  4. MULTI-VITAMIN [Concomitant]
  5. FOLIC ACID [Concomitant]
  6. CRESTOR [Concomitant]
  7. HYDROCHLOROTHIAZIDE [Concomitant]
  8. VASOTEC [Concomitant]
  9. VITAMIN [Concomitant]
  10. VICODIN [Concomitant]
  11. NAPROSYN [Concomitant]
  12. PLAQUENIL [Concomitant]

REACTIONS (1)
  - INFECTION [None]
